FAERS Safety Report 7350472-8 (Version None)
Quarter: 2011Q1

REPORT INFORMATION
  Report Type: 
  Country: None (occurrence: None)
  Receive Date: 20110314
  Receipt Date: 20091005
  Transmission Date: 20110831
  Serious: Yes (Other)
  Sender: FDA-Public Use
  Company Number: PHHY2009DE67375

PATIENT

DRUGS (1)
  1. EXTAVIA [Suspect]
     Route: 058
     Dates: start: 20090815

REACTIONS (5)
  - BLINDNESS UNILATERAL [None]
  - HYPERHIDROSIS [None]
  - MULTIPLE SCLEROSIS RELAPSE [None]
  - IMPAIRED DRIVING ABILITY [None]
  - ERYTHEMA [None]
